FAERS Safety Report 6534153-6 (Version None)
Quarter: 2009Q4

REPORT INFORMATION
  Report Type: 
  Country: None (occurrence: None)
  Receive Date: 20091214
  Receipt Date: 20090324
  Transmission Date: 20100525
  Serious: Yes (Other)
  Sender: FDA-Public Use
  Company Number: 379414

PATIENT
  Age: 56 Year
  Sex: Male

DRUGS (4)
  1. PEGASYS [Suspect]
     Indication: HEPATITIS C VIRUS TEST
     Dosage: OTHER
     Route: 050
     Dates: start: 20040525, end: 20050414
  2. COPEGUS [Suspect]
     Indication: HEPATITIS C VIRUS TEST
     Dosage: ORAL
     Route: 048
     Dates: start: 20040525, end: 20050414
  3. WELLBUTRIN [Concomitant]
  4. TRAZODONE HCL [Concomitant]

REACTIONS (17)
  - ABDOMINAL PAIN [None]
  - ALOPECIA [None]
  - ARTHRALGIA [None]
  - CONTUSION [None]
  - DIARRHOEA [None]
  - DYSPNOEA [None]
  - FATIGUE [None]
  - GOITRE [None]
  - GROIN PAIN [None]
  - MYOCARDIAL INFARCTION [None]
  - PAIN [None]
  - PAIN IN EXTREMITY [None]
  - PLATELET COUNT DECREASED [None]
  - RHINORRHOEA [None]
  - TESTICULAR PAIN [None]
  - TREATMENT FAILURE [None]
  - WHITE BLOOD CELL COUNT DECREASED [None]
